FAERS Safety Report 4535072-7 (Version None)
Quarter: 2004Q4

REPORT INFORMATION
  Report Type: 
  Country: None (occurrence: None)
  Receive Date: 20041222
  Receipt Date: 20041102
  Transmission Date: 20050328
  Serious: Yes (Hospitalization)
  Sender: FDA-Public Use
  Company Number: JP-BRISTOL-MYERS SQUIBB COMPANY-12757993

PATIENT
  Age: 60 Year
  Sex: Male

DRUGS (6)
  1. ENDOXAN [Suspect]
     Indication: MULTIPLE MYELOMA
     Route: 041
     Dates: start: 20010619, end: 20010620
  2. ADRIACIN [Suspect]
     Indication: MULTIPLE MYELOMA
     Dosage: START DATE:  MAR-2001.  DURATION: 4 CYCLES
     Route: 041
     Dates: start: 20010531, end: 20010531
  3. ONCOVIN [Suspect]
     Indication: MULTIPLE MYELOMA
     Dosage: START DATE:   MAR-2001.  DURATION:  4 CYCLES
     Route: 041
     Dates: start: 20010531, end: 20010531
  4. DECADRON [Suspect]
     Indication: MULTIPLE MYELOMA
     Dosage: START DATE:  MAR-2001.  DURATION:  4 CYCLES
     Route: 041
     Dates: start: 20010531, end: 20010531
  5. MELPHALAN [Suspect]
     Indication: MULTIPLE MYELOMA
     Dates: start: 20010803, end: 20010804
  6. PERIPHERAL BLOOD STEM CELL TRANSPLANTATION [Concomitant]
     Dates: start: 20010806

REACTIONS (10)
  - BONE MARROW DEPRESSION [None]
  - COLON CANCER [None]
  - CONDITION AGGRAVATED [None]
  - HERPES ZOSTER [None]
  - METASTASES TO LYMPH NODES [None]
  - METASTASIS [None]
  - MULTIPLE MYELOMA [None]
  - PNEUMONIA [None]
  - RESPIRATORY FAILURE [None]
  - STEM CELL TRANSPLANT [None]
